FAERS Safety Report 25827705 (Version 1)
Quarter: 2025Q3

REPORT INFORMATION
  Report Type: Report from Study
  Country: GB (occurrence: GB)
  Receive Date: 20250921
  Receipt Date: 20250921
  Transmission Date: 20251020
  Serious: Yes (Hospitalization)
  Sender: NOVARTIS
  Company Number: GB-002147023-NVSC2025GB144861

PATIENT
  Sex: Male

DRUGS (1)
  1. COSENTYX [Suspect]
     Active Substance: SECUKINUMAB
     Indication: Product used for unknown indication
     Route: 065

REACTIONS (4)
  - Renal neoplasm [Recovered/Resolved with Sequelae]
  - Psoriasis [Unknown]
  - Arthralgia [Unknown]
  - Product prescribing issue [Unknown]
